FAERS Safety Report 8759739 (Version 1)
Quarter: 2012Q4

REPORT INFORMATION
  Report Type: Report from Study
  Country: GB (occurrence: GB)
  Receive Date: 20120829
  Receipt Date: 20120829
  Transmission Date: 20130627
  Serious: Yes (Life-Threatening, Hospitalization)
  Sender: FDA-Public Use
  Company Number: GB-ROCHE-1105567

PATIENT
  Age: 72 Year
  Sex: Female
  Weight: 79 kg

DRUGS (6)
  1. AVASTIN [Suspect]
     Indication: OESOPHAGEAL ADENOCARCINOMA
     Dosage: last dose 17/Jun/2012
     Route: 042
     Dates: start: 20120517
  2. XELODA [Suspect]
     Indication: OESOPHAGEAL ADENOCARCINOMA
     Dosage: last dose 12/jun/2012
     Route: 048
     Dates: start: 20120517
  3. CISPLATIN [Suspect]
     Indication: OESOPHAGEAL ADENOCARCINOMA
     Dosage: last dose 07/jun/2012
     Route: 042
     Dates: start: 20120517
  4. EPIRUBICIN [Suspect]
     Indication: OESOPHAGEAL ADENOCARCINOMA
     Dosage: last dose 17/jun/2012
     Route: 042
     Dates: start: 20120517
  5. LATANOPROST [Concomitant]
     Route: 050
     Dates: start: 2009
  6. OMEPRAZOLE [Concomitant]
     Route: 048
     Dates: start: 201205

REACTIONS (5)
  - Diarrhoea [Not Recovered/Not Resolved]
  - Neutropenic sepsis [Not Recovered/Not Resolved]
  - Thrombocytopenia [Not Recovered/Not Resolved]
  - Atrial fibrillation [Not Recovered/Not Resolved]
  - Renal failure acute [Not Recovered/Not Resolved]
